FAERS Safety Report 7863586-0 (Version None)
Quarter: 2011Q4

REPORT INFORMATION
  Report Type: 
  Country: None (occurrence: None)
  Receive Date: 20111027
  Receipt Date: 20101207
  Transmission Date: 20120403
  Serious: No
  Sender: FDA-Public Use
  Company Number: US-AMGEN-USASP2010008110

PATIENT
  Sex: Female

DRUGS (1)
  1. ENBREL [Suspect]
     Indication: RHEUMATOID ARTHRITIS
     Dates: start: 20080725

REACTIONS (4)
  - OEDEMA PERIPHERAL [None]
  - INJECTION SITE PAIN [None]
  - PAIN [None]
  - INJECTION SITE ERYTHEMA [None]
